FAERS Safety Report 4343996-9 (Version None)
Quarter: 2004Q2

REPORT INFORMATION
  Report Type: 
  Country: None (occurrence: None)
  Receive Date: 20040421
  Receipt Date: 20040421
  Transmission Date: 20050107
  Serious: Yes (Other)
  Sender: FDA-Public Use
  Company Number: None

PATIENT

DRUGS (2)
  1. NEMBUTAL [Suspect]
     Dosage: 70 MG IV X 1; 30 MG IV X 1
     Route: 042
     Dates: start: 20040323
  2. . [Concomitant]

REACTIONS (4)
  - AGITATION [None]
  - CRYING [None]
  - IRRITABILITY [None]
  - RESTLESSNESS [None]
